FAERS Safety Report 5367390-7 (Version None)
Quarter: 2007Q2

REPORT INFORMATION
  Report Type: 
  Country: None (occurrence: None)
  Receive Date: 20070622
  Receipt Date: 20060907
  Transmission Date: 20071010
  Serious: No
  Sender: FDA-Public Use
  Company Number: US-ASTRAZENECA-2006UW17671

PATIENT
  Age: 78 Year
  Sex: Female
  Weight: 69.4 kg

DRUGS (4)
  1. PULMICORT TURBHALER [Suspect]
     Indication: ASTHMA
     Dosage: 1-2 PUFFS QD
     Route: 055
     Dates: start: 20040101
  2. PULMICORT TURBHALER [Suspect]
     Indication: CHRONIC OBSTRUCTIVE PULMONARY DISEASE
     Dosage: 1-2 PUFFS QD
     Route: 055
     Dates: start: 20040101
  3. ALBUTEROL [Concomitant]
  4. PROVENTIL-HFA [Concomitant]

REACTIONS (2)
  - DRUG INEFFECTIVE [None]
  - DYSPNOEA [None]
